FAERS Safety Report 6842574-7 (Version None)
Quarter: 2010Q3

REPORT INFORMATION
  Report Type: 
  Country: None (occurrence: None)
  Receive Date: 20100714
  Receipt Date: 20070727
  Transmission Date: 20110219
  Serious: No
  Sender: FDA-Public Use
  Company Number: US-PFIZER INC-2007064084

PATIENT
  Sex: Female
  Weight: 102.1 kg

DRUGS (9)
  1. CHANTIX [Suspect]
     Indication: SMOKING CESSATION THERAPY
     Dates: start: 20070721
  2. LAMICTAL [Concomitant]
     Indication: DEPRESSION
     Dates: start: 20060101
  3. KLONOPIN [Concomitant]
     Dosage: WHEN REQUIRED
  4. PROGESTERONE [Concomitant]
  5. HYDROCODONE [Concomitant]
  6. WELLBUTRIN [Concomitant]
     Indication: DEPRESSION
     Dates: start: 19950101
  7. CYMBALTA [Concomitant]
     Indication: DEPRESSION
  8. HYDROCORTISONE [Concomitant]
  9. ESTROGENS [Concomitant]

REACTIONS (4)
  - AGITATION [None]
  - ANXIETY [None]
  - IRRITABILITY [None]
  - PERSONALITY CHANGE [None]
